FAERS Safety Report 6376290-5 (Version None)
Quarter: 2009Q3

REPORT INFORMATION
  Report Type: 
  Country: None (occurrence: None)
  Receive Date: 20090925
  Receipt Date: 20070806
  Transmission Date: 20100115
  Serious: Yes (Other)
  Sender: FDA-Public Use
  Company Number: US-ASTRAZENECA-2006UW26097

PATIENT
  Age: 14596 Day
  Sex: Male
  Weight: 136.1 kg

DRUGS (8)
  1. SEROQUEL [Suspect]
     Indication: SLEEP DISORDER
     Route: 048
     Dates: start: 20010101
  2. SEROQUEL [Suspect]
     Dosage: 25-200 MG
     Route: 048
     Dates: start: 20010119
  3. PAROXETINE HCL [Concomitant]
     Dosage: 10-40 MG
     Dates: start: 20000818
  4. GABAPENTIN [Concomitant]
     Dosage: 300-800 MG
     Route: 048
     Dates: start: 20010827
  5. WELLBUTRIN [Concomitant]
     Dosage: 100-300 MG
     Dates: start: 20050720
  6. CYMBALTA [Concomitant]
     Dosage: 60 MG DISPENSED
     Route: 048
     Dates: start: 20050112
  7. RISPERDAL [Concomitant]
     Dosage: 2-40 MG
     Dates: start: 20000724
  8. TRAZODONE HCL [Concomitant]
     Dosage: 100-150 MG DISPENSED
     Dates: start: 20001220

REACTIONS (4)
  - DIABETES MELLITUS [None]
  - DIABETES MELLITUS INADEQUATE CONTROL [None]
  - DIABETIC NEUROPATHY [None]
  - NEUROPATHY PERIPHERAL [None]
